FAERS Safety Report 5705164-5 (Version None)
Quarter: 2008Q2

REPORT INFORMATION
  Report Type: 
  Country: None (occurrence: None)
  Receive Date: 20080410
  Receipt Date: 20080325
  Transmission Date: 20081010
  Serious: No
  Sender: FDA-Public Use
  Company Number: 002#2#2008-00152

PATIENT
  Age: 51 Year
  Sex: Male
  Weight: 136.0791 kg

DRUGS (16)
  1. NEUPRO [Suspect]
     Indication: PARKINSON'S DISEASE
     Dosage: 6MG/24H,1 IN 1 D, TRANSDERMAL : 4MG/24H,1 IN 1 D,TRANSDERMAL : 2MG/24H,1 IN 1 D, TRANSDERMAL
     Route: 062
     Dates: start: 20070101, end: 20070101
  2. NEUPRO [Suspect]
     Indication: PARKINSON'S DISEASE
     Dosage: 6MG/24H,1 IN 1 D, TRANSDERMAL : 4MG/24H,1 IN 1 D,TRANSDERMAL : 2MG/24H,1 IN 1 D, TRANSDERMAL
     Route: 062
     Dates: start: 20070101, end: 20070101
  3. NEUPRO [Suspect]
     Indication: PARKINSON'S DISEASE
     Dosage: 6MG/24H,1 IN 1 D, TRANSDERMAL : 4MG/24H,1 IN 1 D,TRANSDERMAL : 2MG/24H,1 IN 1 D, TRANSDERMAL
     Route: 062
     Dates: start: 20070101, end: 20080319
  4. STALEVO 100 [Concomitant]
  5. AMANTADINE HCL [Concomitant]
  6. SINEMET [Concomitant]
  7. COMTAN [Concomitant]
  8. VITAMIN E [Concomitant]
  9. ZOLOFT [Concomitant]
  10. HYZAAR [Concomitant]
  11. XANAX [Concomitant]
  12. TERBINAFINE HCL [Concomitant]
  13. ZOCOR [Concomitant]
  14. FELODIPINE [Concomitant]
  15. TOPROL-XL [Concomitant]
  16. GLUCOPHAGE [Concomitant]

REACTIONS (7)
  - APPLICATION SITE IRRITATION [None]
  - APPLICATION SITE PRURITUS [None]
  - HALLUCINATION [None]
  - HEADACHE [None]
  - INSOMNIA [None]
  - NAUSEA [None]
  - PHARMACEUTICAL PRODUCT COMPLAINT [None]
